FAERS Safety Report 9864274 (Version 1)
Quarter: 2014Q1

REPORT INFORMATION
  Report Type: Spontaneous
  Country: US (occurrence: US)
  Receive Date: 20140203
  Receipt Date: 20140203
  Transmission Date: 20141002
  Serious: No
  Sender: FDA-Public Use
  Company Number: US-AMGEN-USASP2014000385

PATIENT
  Age: 70 Year
  Sex: Female

DRUGS (2)
  1. ENBREL [Suspect]
     Indication: RHEUMATOID ARTHRITIS
     Dosage: 25 MG, SOMETIMES TWICE WEEKLY OR WEEKLY
     Route: 065
     Dates: start: 20010101
  2. CORTISONE [Concomitant]
     Dosage: 2 INJECTIONS

REACTIONS (3)
  - Arthropathy [Recovered/Resolved]
  - Musculoskeletal discomfort [Recovered/Resolved]
  - Bronchitis [Recovered/Resolved]
